FAERS Safety Report 26092876 (Version 1)
Quarter: 2025Q4

REPORT INFORMATION
  Report Type: Report from Study
  Country: IN (occurrence: IN)
  Receive Date: 20251126
  Receipt Date: 20251126
  Transmission Date: 20260118
  Serious: Yes (Other)
  Sender: DAIICHI
  Company Number: IN-AstraZeneca-CH-00995387A

PATIENT
  Sex: Male
  Weight: 73 kg

DRUGS (1)
  1. ENHERTU [Suspect]
     Active Substance: FAM-TRASTUZUMAB DERUXTECAN-NXKI
     Indication: Small cell lung cancer extensive stage
     Dosage: 120 MG, ONCE EVERY 3 WK
     Route: 041

REACTIONS (1)
  - Pancreatitis [Unknown]
